FAERS Safety Report 5479992-8 (Version None)
Quarter: 2007Q4

REPORT INFORMATION
  Report Type: 
  Country: None (occurrence: None)
  Receive Date: 20071008
  Receipt Date: 20070928
  Transmission Date: 20080405
  Serious: Yes (Other)
  Sender: FDA-Public Use
  Company Number: GB-ABBOTT-07P-167-0418738-00

PATIENT
  Sex: Female

DRUGS (1)
  1. GOPTEN [Suspect]
     Indication: DRUG USE FOR UNKNOWN INDICATION
     Route: 048
     Dates: start: 20070928

REACTIONS (2)
  - ACCIDENTAL OVERDOSE [None]
  - SELF-INDUCED VOMITING [None]
